FAERS Safety Report 11163363 (Version 2)
Quarter: 2016Q1

REPORT INFORMATION
  Report Type: Spontaneous
  Country: US (occurrence: US)
  Receive Date: 20150604
  Receipt Date: 20160310
  Transmission Date: 20160525
  Serious: Yes (Other)
  Sender: FDA-Public Use
  Company Number: US-SA-2015SA034805

PATIENT
  Age: 89 Year
  Sex: Female

DRUGS (2)
  1. SOLOSTAR [Concomitant]
     Active Substance: DEVICE
     Indication: TYPE 2 DIABETES MELLITUS
  2. LANTUS SOLOSTAR [Suspect]
     Active Substance: INSULIN GLARGINE
     Indication: TYPE 2 DIABETES MELLITUS
     Dosage: TREATMENT STRAT DATE: 6-7 YEARS AGO DOSE:14 UNIT(S)
     Route: 065
     Dates: start: 1999

REACTIONS (2)
  - Diabetic complication [Unknown]
  - Cataract operation [Unknown]

NARRATIVE: CASE EVENT DATE: 2010
